FAERS Safety Report 7504143-5 (Version None)
Quarter: 2011Q2

REPORT INFORMATION
  Report Type: 
  Country: None (occurrence: None)
  Receive Date: 20110525
  Receipt Date: 20110513
  Transmission Date: 20111010
  Serious: Yes (Hospitalization, Other)
  Sender: FDA-Public Use
  Company Number: US-ELI_LILLY_AND_COMPANY-US201105004799

PATIENT
  Sex: Female

DRUGS (3)
  1. CALCIUM CARBONATE [Concomitant]
  2. VITAMIN D [Concomitant]
  3. FORTEO [Suspect]
     Indication: OSTEOPOROSIS
     Dosage: 20 UG, QD
     Dates: start: 20090101

REACTIONS (7)
  - SPINAL FRACTURE [None]
  - ROAD TRAFFIC ACCIDENT [None]
  - BODY HEIGHT DECREASED [None]
  - BACK PAIN [None]
  - SPINAL DEFORMITY [None]
  - MALAISE [None]
  - GROIN PAIN [None]
